FAERS Safety Report 8852082 (Version 1)
Quarter: 2012Q4

REPORT INFORMATION
  Report Type: 
  Country: US (occurrence: US)
  Receive Date: 20121022
  Receipt Date: 20121022
  Transmission Date: 20130627
  Serious: No
  Sender: FDA-Public Use
  Company Number: US-009507513-1210USA004452

PATIENT
  Age: 59 Year
  Sex: Female

DRUGS (13)
  1. DULERA [Suspect]
     Indication: ASTHMA
     Dosage: 200mcg/5mcg , 2 puffs twice daily, inhalation by mouth
     Dates: start: 20120905, end: 20121008
  2. PROAIR (ALBUTEROL SULFATE) [Concomitant]
     Dosage: UNK, prn
  3. EPIPEN [Concomitant]
     Dosage: UNK, prn
  4. METFORMIN [Concomitant]
  5. SIMVASTATIN [Concomitant]
  6. FLONASE [Concomitant]
  7. VITAMIN D (UNSPECIFIED) [Concomitant]
  8. ASPIRIN [Concomitant]
  9. LISINOPRIL [Concomitant]
  10. CARBINOXAMINE MALEATE [Concomitant]
  11. SITAGLIPTIN PHOSPHATE [Concomitant]
  12. TRICOR (ADENOSINE) [Concomitant]
  13. ASTELIN (DYPHYLLINE) [Concomitant]

REACTIONS (1)
  - Drug ineffective [Unknown]
